FAERS Safety Report 10129212 (Version 1)
Quarter: 2014Q2

REPORT INFORMATION
  Report Type: Spontaneous
  Country: US (occurrence: None)
  Receive Date: 20140425
  Receipt Date: 20140425
  Transmission Date: 20141212
  Serious: Yes (Other)
  Sender: FDA-Public Use
  Company Number: None

PATIENT
  Age: 48 Year
  Sex: Female

DRUGS (4)
  1. SUTENT [Suspect]
     Indication: RENAL CANCER
     Dates: start: 20131219, end: 20130414
  2. LORAZEPAM [Concomitant]
  3. FLUOXETINE [Concomitant]
  4. MOBIC [Concomitant]

REACTIONS (1)
  - Drug tolerance decreased [None]
